FAERS Safety Report 10649684 (Version 1)
Quarter: 2014Q4

REPORT INFORMATION
  Report Type: Spontaneous
  Country: US (occurrence: US)
  Receive Date: 20141212
  Receipt Date: 20141212
  Transmission Date: 20150529
  Serious: No
  Sender: FDA-Public Use
  Company Number: US-TEVA-528160USA

PATIENT
  Sex: Female

DRUGS (3)
  1. FENTANYL PATCHES [Suspect]
     Active Substance: FENTANYL
     Route: 062
  2. ACTIQ [Suspect]
     Active Substance: FENTANYL CITRATE
     Indication: PAIN MANAGEMENT
     Route: 065
  3. ACTIQ GENERIC [Suspect]
     Active Substance: FENTANYL CITRATE
     Route: 065

REACTIONS (5)
  - Urticaria [Unknown]
  - Malaise [Unknown]
  - Adverse event [Unknown]
  - Hypersensitivity [Unknown]
  - Drug ineffective [Unknown]
